FAERS Safety Report 26145200 (Version 1)
Quarter: 2025Q4

REPORT INFORMATION
  Report Type: Spontaneous
  Country: US (occurrence: None)
  Receive Date: 20251210
  Receipt Date: 20251210
  Transmission Date: 20260118
  Serious: Yes (Other)
  Sender: FDA-CTU
  Company Number: None

PATIENT
  Age: 89 Year
  Sex: Male
  Weight: 60.75 kg

DRUGS (1)
  1. ERLEADA [Suspect]
     Active Substance: APALUTAMIDE
     Indication: Prostate cancer
     Dosage: FREQUENCY : DAILY;
     Route: 048
     Dates: start: 20250908

REACTIONS (4)
  - Vomiting [None]
  - Weight decreased [None]
  - Decreased appetite [None]
  - Blood pressure increased [None]

NARRATIVE: CASE EVENT DATE: 20251010
